FAERS Safety Report 8854114 (Version 1)
Quarter: 2012Q4

REPORT INFORMATION
  Report Type: 
  Country: TR (occurrence: TR)
  Receive Date: 20121022
  Receipt Date: 20121022
  Transmission Date: 20130627
  Serious: Yes (Other)
  Sender: FDA-Public Use
  Company Number: TR-BAYER-2012-107635

PATIENT
  Age: 61 Year
  Sex: Female

DRUGS (3)
  1. NEXAVAR [Suspect]
     Indication: GASTROINTESTINAL STROMAL CANCER
     Dosage: 800 mg/day
  2. SUNITINIB [Suspect]
     Indication: GASTROINTESTINAL STROMAL CANCER
     Dosage: 50 mg/day
  3. SUNITINIB [Suspect]
     Indication: GASTROINTESTINAL STROMAL CANCER
     Dosage: 37.5 mg/day

REACTIONS (4)
  - Focal segmental glomerulosclerosis [None]
  - Nephrotic syndrome [None]
  - Proteinuria [None]
  - Hypertension [None]
